FAERS Safety Report 18727488 (Version 2)
Quarter: 2021Q1

REPORT INFORMATION
  Report Type: Spontaneous
  Country: US (occurrence: US)
  Receive Date: 20210111
  Receipt Date: 20210222
  Transmission Date: 20210419
  Serious: No
  Sender: FDA-Public Use
  Company Number: US-ALKERMES INC.-ALK-2021-000030

PATIENT
  Age: 54 Year
  Sex: Male
  Weight: 86.17 kg

DRUGS (4)
  1. OXYCODONE HYDROCHLORIDE. [Concomitant]
     Active Substance: OXYCODONE HYDROCHLORIDE
     Dosage: 5 MILLIGRAM, QID
     Route: 065
  2. VIVITROL [Suspect]
     Active Substance: NALTREXONE
     Indication: ALCOHOLISM
     Dosage: 380 MILLIGRAM, QMO
     Route: 030
     Dates: start: 20201217, end: 20201217
  3. VIVITROL [Suspect]
     Active Substance: NALTREXONE
     Indication: SUBSTANCE USE DISORDER
     Dosage: 380 MILLIGRAM, QMO
     Route: 030
     Dates: start: 20201024, end: 20201024
  4. OXYCODONE HYDROCHLORIDE. [Concomitant]
     Active Substance: OXYCODONE HYDROCHLORIDE
     Indication: PRODUCT USED FOR UNKNOWN INDICATION
     Dosage: 5 MILLIGRAM, QID
     Route: 065
     Dates: start: 20200928, end: 20200928

REACTIONS (5)
  - Hypoaesthesia [Not Recovered/Not Resolved]
  - Injection site discomfort [Unknown]
  - Injection site reaction [Unknown]
  - Sciatica [Not Recovered/Not Resolved]
  - Injection site pain [Unknown]

NARRATIVE: CASE EVENT DATE: 202012
